FAERS Safety Report 5565234-1 (Version None)
Quarter: 2007Q4

REPORT INFORMATION
  Report Type: 
  Country: None (occurrence: None)
  Receive Date: 20071218
  Receipt Date: 20071207
  Transmission Date: 20080405
  Serious: Yes (Other)
  Sender: FDA-Public Use
  Company Number: US-AMGEN-US253656

PATIENT
  Sex: Male

DRUGS (11)
  1. ENBREL [Suspect]
     Indication: RHEUMATOID ARTHRITIS
     Route: 058
     Dates: start: 20030122, end: 20070625
  2. ENBREL [Suspect]
     Route: 042
     Dates: start: 20070625, end: 20071120
  3. METHOTREXATE [Concomitant]
     Route: 048
     Dates: start: 20000511
  4. ULTRAM [Concomitant]
     Route: 048
     Dates: start: 19980709
  5. CELEBREX [Concomitant]
     Route: 048
     Dates: start: 20010412
  6. DIOVAN [Concomitant]
     Route: 065
     Dates: start: 20070924
  7. LEVOXYL [Concomitant]
     Route: 065
     Dates: start: 20000713
  8. FOLIC ACID [Concomitant]
     Route: 065
     Dates: start: 20000511
  9. AMBIEN [Concomitant]
     Route: 065
     Dates: start: 19990624
  10. RHINOCORT [Concomitant]
     Route: 065
     Dates: start: 20050216
  11. NEXIUM [Concomitant]
     Route: 065
     Dates: start: 20070724

REACTIONS (1)
  - LUPUS-LIKE SYNDROME [None]
